FAERS Safety Report 21294441 (Version 5)
Quarter: 2022Q4

REPORT INFORMATION
  Report Type: Spontaneous
  Country: US (occurrence: US)
  Receive Date: 20220905
  Receipt Date: 20221130
  Transmission Date: 20230112
  Serious: No
  Sender: FDA-Public Use
  Company Number: US-BEH-2022149190

PATIENT
  Sex: Female

DRUGS (3)
  1. HUMATE-P [Suspect]
     Active Substance: HUMAN COAGULATION FACTOR VIII/VON WILLEBRAND FACTOR COMPLEX
     Indication: Von Willebrand^s disease
     Dosage: 511 INTERNATIONAL UNIT, DAILY AS NEEDED
     Route: 042
     Dates: start: 20220317
  2. HUMATE-P [Suspect]
     Active Substance: HUMAN COAGULATION FACTOR VIII/VON WILLEBRAND FACTOR COMPLEX
     Indication: Haemorrhage
     Dosage: 511 INTERNATIONAL UNIT, DAILY AS NEEDED
     Route: 042
     Dates: start: 20210626
  3. HUMATE-P [Suspect]
     Active Substance: HUMAN COAGULATION FACTOR VIII/VON WILLEBRAND FACTOR COMPLEX
     Indication: Epistaxis
     Dosage: 2 MINOR DOSES
     Route: 042
     Dates: start: 20220923

REACTIONS (2)
  - No adverse event [Unknown]
  - Intercepted product storage error [Unknown]
